FAERS Safety Report 8385450 (Version 4)
Quarter: 2013Q2

REPORT INFORMATION
  Report Type: Report from Study
  Country: DE (occurrence: DE)
  Receive Date: 20120202
  Receipt Date: 20130412
  Transmission Date: 20140414
  Serious: Yes (Hospitalization)
  Sender: FDA-Public Use
  Company Number: DE-ABBOTT-12P-062-0895896-01

PATIENT
  Age: 45 Year
  Sex: Female

DRUGS (11)
  1. HUMIRA [Suspect]
     Indication: CROHN^S DISEASE
     Dosage: BASELINE
     Route: 058
     Dates: start: 20090130, end: 20090130
  2. HUMIRA [Suspect]
     Dosage: WEEK 2
     Route: 058
  3. HUMIRA [Suspect]
     Route: 058
     Dates: start: 20090804, end: 20091117
  4. PANTOPRAZOLE SODIUM [Concomitant]
     Indication: GASTRITIS EROSIVE
  5. METHOTREXATE [Concomitant]
     Indication: CROHN^S DISEASE
     Dates: start: 20090804
  6. 5-ASA/MESALAMINE [Concomitant]
     Indication: PRODUCT USED FOR UNKNOWN INDICATION
  7. NOVALGIN [Concomitant]
     Indication: CROHN^S DISEASE
  8. AMINEURIN [Concomitant]
     Indication: DEPRESSION
     Dates: start: 2002
  9. ALLOPURINOL [Concomitant]
     Indication: HYPERURICAEMIA
     Dates: start: 1998
  10. THYRONAJOD [Concomitant]
     Indication: HYPERTHYROIDISM
     Dates: start: 1997
  11. FOLCUR [Concomitant]
     Indication: HYPERTENSION
     Dates: start: 2008

REACTIONS (1)
  - Ileal stenosis [Unknown]
